FAERS Safety Report 11053068 (Version 2)
Quarter: 2015Q2

REPORT INFORMATION
  Report Type: Spontaneous
  Country: US (occurrence: US)
  Receive Date: 20150421
  Receipt Date: 20150525
  Transmission Date: 20150821
  Serious: No
  Sender: FDA-Public Use
  Company Number: US-JNJFOC-20140201477

PATIENT
  Sex: Male
  Weight: 83.92 kg

DRUGS (1)
  1. RISPERDAL [Suspect]
     Active Substance: RISPERIDONE
     Indication: SCHIZOAFFECTIVE DISORDER
     Dosage: 4-6MG/TABLET/4-6MG/ONCE DAILY/ORAL
     Route: 048
     Dates: start: 20131017, end: 2013

REACTIONS (1)
  - Schizophrenia [Recovered/Resolved]
